FAERS Safety Report 23967532 (Version 6)
Quarter: 2024Q3

REPORT INFORMATION
  Report Type: Spontaneous
  Country: US (occurrence: US)
  Receive Date: 20240612
  Receipt Date: 20240729
  Transmission Date: 20241017
  Serious: No
  Sender: BIOVITRUM
  Company Number: US-BIOVITRUM-2024-US-008470

PATIENT
  Age: 80 Year
  Sex: Male

DRUGS (2)
  1. VONJO [Suspect]
     Active Substance: PACRITINIB
     Indication: Myeloproliferative neoplasm
     Dosage: 200 MG TWICE A DAY (BID)
     Route: 048
     Dates: start: 20240601
  2. VONJO [Suspect]
     Active Substance: PACRITINIB
     Dosage: 200 MG ONCE A DAY
     Route: 048

REACTIONS (15)
  - Intentional product misuse [Not Recovered/Not Resolved]
  - Eating disorder [Unknown]
  - Inappropriate schedule of product administration [Unknown]
  - Torticollis [Unknown]
  - Muscle tightness [Unknown]
  - Scoliosis [Unknown]
  - Vomiting [Unknown]
  - Diarrhoea [Unknown]
  - Product dose omission issue [Unknown]
  - Weight decreased [Unknown]
  - Gastrointestinal disorder [Unknown]
  - Malaise [Unknown]
  - Gait disturbance [Unknown]
  - Insomnia [Unknown]
  - Musculoskeletal stiffness [Unknown]
